FAERS Safety Report 18728577 (Version 1)
Quarter: 2021Q1

REPORT INFORMATION
  Report Type: Spontaneous
  Country: US (occurrence: US)
  Receive Date: 20210111
  Receipt Date: 20210111
  Transmission Date: 20210419
  Serious: Yes (Death)
  Sender: FDA-Public Use
  Company Number: None

PATIENT
  Age: 79 Year
  Sex: Female

DRUGS (27)
  1. ALPHAGAN P [Concomitant]
     Active Substance: BRIMONIDINE TARTRATE
  2. HYDRALAZINE [Concomitant]
     Active Substance: HYDRALAZINE HYDROCHLORIDE
  3. REMODULIN [Concomitant]
     Active Substance: TREPROSTINIL
  4. SILDENAFIL 20MG TAB [Suspect]
     Active Substance: SILDENAFIL
     Indication: PULMONARY ARTERIAL HYPERTENSION
     Route: 048
     Dates: start: 20180106, end: 20210103
  5. FEROSUL [Concomitant]
     Active Substance: FERROUS SULFATE
  6. METOPROL TAR [Concomitant]
  7. SYNTHROID [Concomitant]
     Active Substance: LEVOTHYROXINE SODIUM
  8. LETAIRIS [Concomitant]
     Active Substance: AMBRISENTAN
  9. KAPSPARGO [Concomitant]
     Active Substance: METOPROLOL SUCCINATE
  10. LASIX [Concomitant]
     Active Substance: FUROSEMIDE
  11. LIPITOR [Concomitant]
     Active Substance: ATORVASTATIN CALCIUM
  12. BRIMONIDINE [Concomitant]
     Active Substance: BRIMONIDINE TARTRATE
  13. LATANOPROST. [Concomitant]
     Active Substance: LATANOPROST
  14. MAGNESIUM [Concomitant]
     Active Substance: MAGNESIUM
  15. OMEPRAZOLE. [Concomitant]
     Active Substance: OMEPRAZOLE
  16. SILDENAFIL. [Concomitant]
     Active Substance: SILDENAFIL
  17. APAP/CODEINE [Concomitant]
     Active Substance: ACETAMINOPHEN\CODEINE PHOSPHATE
  18. LEVOTHYROXIN [Concomitant]
     Active Substance: LEVOTHYROXINE
  19. METOPROL SUC ER [Concomitant]
     Active Substance: METOPROLOL SUCCINATE
  20. WARFARIN [Concomitant]
     Active Substance: WARFARIN
  21. FUROSEMIDE. [Concomitant]
     Active Substance: FUROSEMIDE
  22. MIRTAZAPINE. [Concomitant]
     Active Substance: MIRTAZAPINE
  23. ALDACTONE [Concomitant]
     Active Substance: SPIRONOLACTONE
  24. ATORVASTATIN [Concomitant]
     Active Substance: ATORVASTATIN
  25. FERROUSE SULF [Concomitant]
  26. LIDOCAINE. [Concomitant]
     Active Substance: LIDOCAINE
  27. XALATAN [Concomitant]
     Active Substance: LATANOPROST

REACTIONS (1)
  - Death [None]

NARRATIVE: CASE EVENT DATE: 20210103
